FAERS Safety Report 4875654-6 (Version None)
Quarter: 2006Q1

REPORT INFORMATION
  Report Type: 
  Country: None (occurrence: None)
  Receive Date: 20060105
  Receipt Date: 20051219
  Transmission Date: 20060701
  Serious: Yes (Hospitalization)
  Sender: FDA-Public Use
  Company Number: GXKR2005CZ02236

PATIENT
  Age: 32 Year
  Sex: Male

DRUGS (3)
  1. OSPEN (NGX) (PHENOXYMETHYLPENICILLIN BENZATHINE), 1500MG [Suspect]
     Indication: TONSILLITIS
     Dosage: 1500 MG, TID, ORAL
     Route: 048
     Dates: start: 20051103, end: 20051113
  2. COXTRAL (NIMESULIDE) [Concomitant]
  3. ASCORUTIN (ASCORBIC ACID, RUTOSIDE) [Concomitant]

REACTIONS (4)
  - ANGIONEUROTIC OEDEMA [None]
  - BLISTER [None]
  - EPIGASTRIC DISCOMFORT [None]
  - ERYTHEMA [None]
